FAERS Safety Report 16543153 (Version 1)
Quarter: 2019Q3

REPORT INFORMATION
  Report Type: Spontaneous
  Country: SE (occurrence: SE)
  Receive Date: 20190709
  Receipt Date: 20190709
  Transmission Date: 20191004
  Serious: Yes (Other)
  Sender: FDA-Public Use
  Company Number: SE-TEVA-2019-SE-1074217

PATIENT
  Age: 77 Year
  Sex: Male

DRUGS (2)
  1. GEMCITABINE. [Suspect]
     Active Substance: GEMCITABINE
     Indication: PANCREATIC CARCINOMA
     Dates: start: 201902
  2. ELIQUIS 2,5 MG FILMDRAGERAD TABLETT [Concomitant]

REACTIONS (3)
  - Oedema peripheral [Recovered/Resolved]
  - Occult blood positive [Recovered/Resolved]
  - Anaemia [Recovered/Resolved]
